FAERS Safety Report 9029514 (Version 1)
Quarter: 2013Q1

REPORT INFORMATION
  Report Type: Spontaneous
  Country: US (occurrence: US)
  Receive Date: 20130125
  Receipt Date: 20130125
  Transmission Date: 20140127
  Serious: No
  Sender: FDA-Public Use
  Company Number: US-009507513-1301USA008626

PATIENT
  Age: 57 None
  Sex: Female

DRUGS (3)
  1. EMEND [Suspect]
     Indication: CHEMOTHERAPY
     Dosage: 125MG/80MG ONCE A DAY FOR 3 DAYS
     Route: 048
     Dates: start: 20130114
  2. LORAZEPAM [Concomitant]
  3. GABAPENTIN [Concomitant]

REACTIONS (3)
  - Nausea [Recovering/Resolving]
  - Product quality issue [Unknown]
  - Drug dose omission [Unknown]
